FAERS Safety Report 5792751-1 (Version None)
Quarter: 2008Q2

REPORT INFORMATION
  Report Type: 
  Country: None (occurrence: None)
  Receive Date: 20080624
  Receipt Date: 20080611
  Transmission Date: 20081010
  Serious: Yes (Hospitalization)
  Sender: FDA-Public Use
  Company Number: 1-16259013/MED-08118

PATIENT
  Age: 72 Year
  Sex: Female
  Weight: 143 kg

DRUGS (7)
  1. SULFAMETHOXAZOLE/TRIMETHOPRIM [Suspect]
     Indication: URINARY TRACT INFECTION
     Dosage: ONE TABLET TWICE DAILY, ORAL
     Route: 048
     Dates: start: 20080516, end: 20080520
  2. LOVENOX [Suspect]
     Dosage: SUBCUTANEOUS
     Route: 058
     Dates: start: 20080301
  3. METRONIDAZOLE        TABLET (UNK MANUFACTURER) [Suspect]
     Dosage: 250 MG, ORAL
     Route: 048
     Dates: start: 20080501, end: 20080608
  4. VICODIN (HYDROCODONE AND ACETAMINOPHEN) [Concomitant]
  5. TRAMADOL HCL [Concomitant]
  6. CALCIUM WITH VITAMIN D [Concomitant]
  7. MULTI-VITAMIN [Concomitant]

REACTIONS (3)
  - DIVERTICULITIS [None]
  - DRUG INEFFECTIVE [None]
  - PYREXIA [None]
